FAERS Safety Report 25524855 (Version 1)
Quarter: 2025Q3

REPORT INFORMATION
  Report Type: Report from Study
  Country: CH (occurrence: CH)
  Receive Date: 20250707
  Receipt Date: 20250707
  Transmission Date: 20251021
  Serious: Yes (Death)
  Sender: TEVA
  Company Number: CH-TEVA-VS-3348853

PATIENT

DRUGS (3)
  1. TEMOZOLOMIDE [Suspect]
     Active Substance: TEMOZOLOMIDE
     Indication: Phaeochromocytoma
     Route: 065
  2. PEMBROLIZUMAB [Suspect]
     Active Substance: PEMBROLIZUMAB
     Indication: Metastasis
     Route: 065
  3. SUNITINIB [Suspect]
     Active Substance: SUNITINIB
     Indication: Phaeochromocytoma
     Route: 065

REACTIONS (1)
  - Drug ineffective [Fatal]
